FAERS Safety Report 23971361 (Version 4)
Quarter: 2025Q1

REPORT INFORMATION
  Report Type: Spontaneous
  Country: US (occurrence: None)
  Receive Date: 20240613
  Receipt Date: 20250210
  Transmission Date: 20250409
  Serious: Yes (Other)
  Sender: MDD OPERATIONS
  Company Number: US-MDD US Operations-MDD202205-001111

PATIENT
  Age: 76 Year
  Sex: Male

DRUGS (12)
  1. APOKYN [Suspect]
     Active Substance: APOMORPHINE HYDROCHLORIDE
     Indication: Parkinson^s disease
     Route: 058
  2. APOKYN [Suspect]
     Active Substance: APOMORPHINE HYDROCHLORIDE
     Indication: On and off phenomenon
     Route: 058
  3. APOKYN [Suspect]
     Active Substance: APOMORPHINE HYDROCHLORIDE
     Route: 058
  4. APOKYN [Suspect]
     Active Substance: APOMORPHINE HYDROCHLORIDE
  5. APOKYN [Suspect]
     Active Substance: APOMORPHINE HYDROCHLORIDE
     Route: 058
     Dates: start: 202203
  6. APOKYN [Suspect]
     Active Substance: APOMORPHINE HYDROCHLORIDE
     Route: 058
  7. APOKYN [Suspect]
     Active Substance: APOMORPHINE HYDROCHLORIDE
     Route: 058
     Dates: start: 202203
  8. APOKYN [Suspect]
     Active Substance: APOMORPHINE HYDROCHLORIDE
     Route: 058
     Dates: start: 20220426
  9. APOKYN [Suspect]
     Active Substance: APOMORPHINE HYDROCHLORIDE
     Route: 058
     Dates: start: 20220426
  10. RYTARY [Concomitant]
     Active Substance: CARBIDOPA\LEVODOPA
  11. GOCOVRI [Concomitant]
     Active Substance: AMANTADINE
  12. CARBIDOPA\LEVODOPA [Concomitant]
     Active Substance: CARBIDOPA\LEVODOPA

REACTIONS (14)
  - Prostate cancer [Unknown]
  - Fall [Unknown]
  - Head injury [Unknown]
  - Syncope [Recovered/Resolved]
  - Hypoaesthesia [Recovered/Resolved]
  - Headache [Recovered/Resolved]
  - Hypotension [Recovered/Resolved]
  - Skin laceration [Recovered/Resolved]
  - Fall [Recovered/Resolved]
  - Orthostatic hypotension [Unknown]
  - Dizziness [Unknown]
  - Needle issue [Unknown]
  - Expired product administered [Unknown]
  - Device use confusion [Unknown]

NARRATIVE: CASE EVENT DATE: 20220503
